FAERS Safety Report 7449625-X (Version None)
Quarter: 2011Q1

REPORT INFORMATION
  Report Type: 
  Country: None (occurrence: None)
  Receive Date: 20110302
  Receipt Date: 20101112
  Transmission Date: 20110831
  Serious: No
  Sender: FDA-Public Use
  Company Number: 021965

PATIENT
  Sex: Male
  Weight: 155.7 kg

DRUGS (8)
  1. LANTUS [Concomitant]
  2. ASPIRIN [Concomitant]
  3. CIMZIA [Suspect]
     Indication: RHEUMATOID ARTHRITIS
     Dosage: 2 SHOTS  EVERY 2 WEEKS FOR THE FIRST 3 TIMES. SUBCUTANEOUS
     Route: 058
     Dates: start: 20101013
  4. METFORMIN HCL [Concomitant]
  5. BENICAR [Concomitant]
  6. GLYBURIDE [Concomitant]
  7. ACTOS [Concomitant]
  8. VERAPAMIL [Concomitant]

REACTIONS (2)
  - ARTHRALGIA [None]
  - OEDEMA PERIPHERAL [None]
